FAERS Safety Report 8822704 (Version 1)
Quarter: 2012Q4

REPORT INFORMATION
  Report Type: 
  Country: DE (occurrence: JP)
  Receive Date: 20121003
  Receipt Date: 20121003
  Transmission Date: 20130627
  Serious: Yes (Hospitalization)
  Sender: FDA-Public Use
  Company Number: JP-BRISTOL-MYERS SQUIBB COMPANY-16774598

PATIENT
  Age: 44 Year
  Sex: Male

DRUGS (16)
  1. METGLUCO [Suspect]
     Indication: TYPE 1 DIABETES MELLITUS
     Route: 048
     Dates: start: 20120701, end: 20120713
  2. VOGLIBOSE [Concomitant]
     Indication: TYPE 1 DIABETES MELLITUS
     Route: 048
  3. NOVORAPID [Concomitant]
     Indication: TYPE 1 DIABETES MELLITUS
     Dosage: inj
     Route: 058
     Dates: start: 2012
  4. BAYASPIRIN [Concomitant]
     Indication: TYPE 1 DIABETES MELLITUS
     Route: 048
     Dates: start: 2012
  5. MEXILETINE HCL [Concomitant]
     Indication: TYPE 1 DIABETES MELLITUS
     Route: 048
     Dates: start: 2012
  6. RINDERON [Concomitant]
     Dates: start: 2012
  7. DERMOVATE [Concomitant]
     Indication: DRUG ERUPTION
     Dosage: rest on 10Jul12
     Dates: start: 2012
  8. KENTAN [Concomitant]
     Indication: MENINGITIS VIRAL
     Route: 048
     Dates: start: 20120625, end: 20120705
  9. REBAMIPIDE [Concomitant]
     Indication: MENINGITIS VIRAL
     Route: 048
     Dates: start: 20120625, end: 20120705
  10. NAUZELIN [Concomitant]
     Indication: MENINGITIS VIRAL
     Route: 048
     Dates: start: 20120625, end: 20120625
  11. ACYCLOVIR [Concomitant]
     Indication: MENINGITIS VIRAL
     Dates: start: 20120625, end: 20120706
  12. PRIMPERAN [Concomitant]
     Indication: MENINGITIS VIRAL
     Dates: start: 20120626, end: 20120627
  13. TAKEPRON [Concomitant]
     Indication: MENINGITIS VIRAL
     Route: 048
     Dates: start: 20120626, end: 20120705
  14. RESTAMIN [Concomitant]
     Indication: DRUG ERUPTION
     Dates: start: 20120703
  15. ALLELOCK [Concomitant]
     Indication: DRUG ERUPTION
     Route: 048
     Dates: start: 20120710
  16. ACTOS [Concomitant]
     Indication: TYPE 1 DIABETES MELLITUS
     Route: 048
     Dates: start: 20120711

REACTIONS (1)
  - Erythema multiforme [Recovered/Resolved]
